FAERS Safety Report 21787686 (Version 1)
Quarter: 2022Q4

REPORT INFORMATION
  Report Type: Spontaneous
  Country: JP (occurrence: JP)
  Receive Date: 20221228
  Receipt Date: 20221228
  Transmission Date: 20230113
  Serious: Yes (Death, Life-Threatening, Hospitalization, Other)
  Sender: FDA-Public Use
  Company Number: JP-MLMSERVICE-20221209-3971989-1

PATIENT
  Age: 73 Year
  Sex: Female

DRUGS (2)
  1. PACLITAXEL [Suspect]
     Active Substance: PACLITAXEL
     Indication: Angiosarcoma
     Dosage: WEEKLY PACLITAXEL, CUMULATIVE DOSE: 6 CYCLICAL
  2. DEXAMETHASONE [Suspect]
     Active Substance: DEXAMETHASONE
     Indication: Premedication

REACTIONS (11)
  - Lung abscess [Unknown]
  - Thrombocytopenia [Unknown]
  - Myocardiac abscess [Unknown]
  - Renal abscess [Unknown]
  - Device related sepsis [Recovered/Resolved]
  - Acute respiratory distress syndrome [Fatal]
  - Septic pulmonary embolism [Fatal]
  - Staphylococcal sepsis [Recovered/Resolved]
  - Septic shock [Recovered/Resolved]
  - Respiratory failure [Fatal]
  - Pneumothorax [Fatal]
